FAERS Safety Report 7146562-5 (Version None)
Quarter: 2010Q4

REPORT INFORMATION
  Report Type: 
  Country: None (occurrence: None)
  Receive Date: 20101208
  Receipt Date: 20101203
  Transmission Date: 20110411
  Serious: Yes (Hospitalization, Other)
  Sender: FDA-Public Use
  Company Number: US-ROXANE LABORATORIES, INC.-2010-RO-01574RO

PATIENT
  Age: 45 Year
  Sex: Female

DRUGS (5)
  1. METHOTREXATE [Suspect]
     Indication: PULMONARY SARCOIDOSIS
  2. PREDNISONE [Suspect]
     Indication: PULMONARY SARCOIDOSIS
  3. AZATHIOPRINE [Suspect]
     Indication: EVIDENCE BASED TREATMENT
  4. LEVETIRACETAM [Suspect]
     Indication: GRAND MAL CONVULSION
  5. TRIMETHOPRIM + SULFAMETHOXAZOLE [Suspect]
     Indication: ANTIBIOTIC PROPHYLAXIS

REACTIONS (3)
  - EPSTEIN-BARR VIRUS ASSOCIATED LYMPHOPROLIFERATIVE DISORDER [None]
  - GRAND MAL CONVULSION [None]
  - WEIGHT INCREASED [None]
